FAERS Safety Report 9228069 (Version 3)
Quarter: 2016Q1

REPORT INFORMATION
  Report Type: Spontaneous
  Country: US (occurrence: US)
  Receive Date: 20130412
  Receipt Date: 20160120
  Transmission Date: 20160526
  Serious: Yes (Life-Threatening, Other)
  Sender: FDA-Public Use
  Company Number: US-ROCHE-1209721

PATIENT
  Age: 40 Year
  Sex: Male

DRUGS (4)
  1. ACTILYSE [Suspect]
     Active Substance: ALTEPLASE
     Indication: PLEURAL EFFUSION
     Dosage: 25 MG/100 ML NS
     Route: 050
  2. ASPIRIN. [Suspect]
     Active Substance: ASPIRIN
     Indication: CORONARY ARTERY DISEASE
     Route: 065
  3. VITAMIN K [Concomitant]
     Active Substance: PHYTONADIONE
     Indication: VITAMIN K DEFICIENCY
  4. HEPARIN [Suspect]
     Active Substance: HEPARIN SODIUM
     Indication: DIALYSIS
     Route: 065

REACTIONS (7)
  - Dyspnoea [Recovered/Resolved]
  - Chest pain [Unknown]
  - Cardiac arrest [Recovered/Resolved]
  - Hypovolaemic shock [Unknown]
  - Tachycardia [Unknown]
  - Hypotension [Unknown]
  - Haemothorax [Recovered/Resolved]
